FAERS Safety Report 9413966 (Version 1)
Quarter: 2013Q3

REPORT INFORMATION
  Report Type: Spontaneous
  Country: BR (occurrence: BR)
  Receive Date: 20130723
  Receipt Date: 20130723
  Transmission Date: 20140515
  Serious: Yes (Other)
  Sender: FDA-Public Use
  Company Number: BR-PFIZER INC-2013214143

PATIENT
  Age: 53 Year
  Sex: Female
  Weight: 70 kg

DRUGS (2)
  1. CELEBRA [Suspect]
     Indication: SPINAL PAIN
     Dosage: 200 MG (1 CAPSULE), 2X/DAY
     Route: 048
     Dates: start: 20100719
  2. CELEBRA [Suspect]
     Indication: HEADACHE

REACTIONS (3)
  - Uterine disorder [Unknown]
  - Headache [Unknown]
  - Spinal pain [Not Recovered/Not Resolved]
